FAERS Safety Report 9462131 (Version 1)
Quarter: 2013Q3

REPORT INFORMATION
  Report Type: Spontaneous
  Country: CN (occurrence: CN)
  Receive Date: 20130816
  Receipt Date: 20130816
  Transmission Date: 20140515
  Serious: Yes (Life-Threatening, Other)
  Sender: FDA-Public Use
  Company Number: CN-SANOFI-AVENTIS-2013SA080326

PATIENT
  Age: 34 Year
  Sex: Male

DRUGS (2)
  1. ELOXATIN [Suspect]
     Indication: HEPATIC CANCER
     Route: 041
     Dates: start: 20130719, end: 20130719
  2. FLUOROURACIL/FOLINIC ACID/OXALIPLATIN [Concomitant]
     Indication: HEPATIC CANCER
     Dates: start: 20130719, end: 20130719

REACTIONS (9)
  - Coma [Not Recovered/Not Resolved]
  - Ventricular fibrillation [Not Recovered/Not Resolved]
  - Renal failure acute [Not Recovered/Not Resolved]
  - Vomiting [Not Recovered/Not Resolved]
  - Oliguria [Not Recovered/Not Resolved]
  - Hypovolaemia [Not Recovered/Not Resolved]
  - Dyspnoea [Not Recovered/Not Resolved]
  - Pallor [Not Recovered/Not Resolved]
  - Chromaturia [Not Recovered/Not Resolved]
